FAERS Safety Report 6011543-1 (Version None)
Quarter: 2008Q4

REPORT INFORMATION
  Report Type: 
  Country: None (occurrence: None)
  Receive Date: 20081218
  Receipt Date: 20080908
  Transmission Date: 20090506
  Serious: No
  Sender: FDA-Public Use
  Company Number: US-ASTRAZENECA-2008UW18498

PATIENT
  Sex: Female
  Weight: 158.8 kg

DRUGS (11)
  1. CRESTOR [Suspect]
     Indication: BLOOD CHOLESTEROL INCREASED
     Route: 048
     Dates: start: 20080902
  2. FLONASE [Concomitant]
  3. B6 COMPLEX [Concomitant]
  4. MULTI-VITAMIN [Concomitant]
  5. ASPIRIN [Concomitant]
  6. LISINOPRIL [Concomitant]
  7. NORVASC [Concomitant]
  8. ATENOLOL [Concomitant]
  9. EFFEXOR XR [Concomitant]
  10. HYDROCHLOROTHIAZIDE [Concomitant]
  11. FUROSEMIDE [Concomitant]

REACTIONS (1)
  - DYSGEUSIA [None]
